FAERS Safety Report 6238058-X (Version None)
Quarter: 2009Q2

REPORT INFORMATION
  Report Type: 
  Country: None (occurrence: None)
  Receive Date: 20090622
  Receipt Date: 20090610
  Transmission Date: 20091009
  Serious: Yes (Other)
  Sender: FDA-Public Use
  Company Number: US-BAYER-200922841NA

PATIENT
  Sex: Female

DRUGS (6)
  1. AVELOX [Suspect]
     Indication: CHRONIC SINUSITIS
     Dates: start: 20090201
  2. AVELOX [Interacting]
     Dates: start: 20080101
  3. LEVAQUIN [Interacting]
     Indication: CHRONIC SINUSITIS
     Dates: start: 20090301
  4. LEVAQUIN [Interacting]
     Dates: start: 20081201
  5. LEVAQUIN [Interacting]
     Dates: start: 20081101
  6. CORTICOSTEROIDS [Interacting]
     Indication: DRUG USE FOR UNKNOWN INDICATION

REACTIONS (1)
  - TENDON RUPTURE [None]
